FAERS Safety Report 8849818 (Version 1)
Quarter: 2012Q4

REPORT INFORMATION
  Report Type: Report from Study
  Country: US (occurrence: US)
  Receive Date: 20121019
  Receipt Date: 20121019
  Transmission Date: 20130627
  Serious: Yes (Other)
  Sender: FDA-Public Use
  Company Number: US-JNJFOC-20121008877

PATIENT
  Sex: Female
  Weight: 68.04 kg

DRUGS (2)
  1. REMICADE [Suspect]
     Indication: JUVENILE ARTHRITIS
     Dosage: stop date reported as both 2003 and 2006
     Route: 042
     Dates: start: 2000
  2. REMICADE [Suspect]
     Indication: JUVENILE ARTHRITIS
     Route: 042

REACTIONS (3)
  - Shock [Unknown]
  - Infusion related reaction [Unknown]
  - Drug tolerance [Not Recovered/Not Resolved]
